FAERS Safety Report 5330637-7 (Version None)
Quarter: 2007Q2

REPORT INFORMATION
  Report Type: 
  Country: None (occurrence: None)
  Receive Date: 20070517
  Receipt Date: 20070501
  Transmission Date: 20071010
  Serious: Yes (Other)
  Sender: FDA-Public Use
  Company Number: ACO_00345_2007

PATIENT
  Sex: Male

DRUGS (2)
  1. TIZANIDINE HCL [Suspect]
     Dosage: 4 MG ONCE ORAL
     Route: 048
  2. FLUVOXAMINE MALEATE [Suspect]
     Dosage: 100 MG QD ORAL
     Route: 048

REACTIONS (10)
  - DISTURBANCE IN ATTENTION [None]
  - DIZZINESS [None]
  - DRUG EFFECT INCREASED [None]
  - DRY MOUTH [None]
  - FEELING HOT [None]
  - HEART RATE DECREASED [None]
  - HYPOTENSION [None]
  - MUSCULAR WEAKNESS [None]
  - SOMNOLENCE [None]
  - URINE OUTPUT DECREASED [None]
